FAERS Safety Report 9471204 (Version 2)
Quarter: 2013Q3

REPORT INFORMATION
  Report Type: Spontaneous
  Country: US (occurrence: None)
  Receive Date: 20130816
  Receipt Date: 20130904
  Transmission Date: 20140515
  Serious: Yes (Disabling, Other)
  Sender: FDA-Public Use
  Company Number: 1308-1033

PATIENT
  Age: 63 Year
  Sex: Female

DRUGS (2)
  1. EYLEA [Suspect]
     Indication: AGE-RELATED MACULAR DEGENERATION
  2. BETADINE [Suspect]
     Indication: AGE-RELATED MACULAR DEGENERATION

REACTIONS (3)
  - Blindness [None]
  - Eye burns [None]
  - Eye pain [None]
